FAERS Safety Report 4741598-3 (Version None)
Quarter: 2005Q3

REPORT INFORMATION
  Report Type: 
  Country: None (occurrence: None)
  Receive Date: 20050801
  Receipt Date: 20050628
  Transmission Date: 20060218
  Serious: No
  Sender: FDA-Public Use
  Company Number: 2005PV000168

PATIENT
  Age: 76 Year
  Sex: Male

DRUGS (3)
  1. BYETTA [Suspect]
     Indication: DIABETES MELLITUS NON-INSULIN-DEPENDENT
     Dosage: 5 UG;BID;SC
     Route: 058
     Dates: start: 20050622, end: 20050626
  2. METFORMIN [Concomitant]
  3. SFU [Concomitant]

REACTIONS (3)
  - URINARY HESITATION [None]
  - URINARY RETENTION [None]
  - URINE FLOW DECREASED [None]
